FAERS Safety Report 8961832 (Version 1)
Quarter: 2012Q4

REPORT INFORMATION
  Report Type: 
  Country: US (occurrence: US)
  Receive Date: 20121213
  Receipt Date: 20121213
  Transmission Date: 20130627
  Serious: Yes (Hospitalization)
  Sender: FDA-Public Use
  Company Number: US-ELI_LILLY_AND_COMPANY-US201212000851

PATIENT
  Sex: Male

DRUGS (1)
  1. FORTEO [Suspect]
     Indication: OSTEOPENIA
     Dosage: UNK, qd
     Dates: start: 201206, end: 201211

REACTIONS (2)
  - Aortic aneurysm [Unknown]
  - Off label use [Unknown]
